FAERS Safety Report 7512321-4 (Version None)
Quarter: 2011Q2

REPORT INFORMATION
  Report Type: 
  Country: None (occurrence: None)
  Receive Date: 20110531
  Receipt Date: 20110517
  Transmission Date: 20111010
  Serious: Yes (Hospitalization, Other)
  Sender: FDA-Public Use
  Company Number: PHHY2011JP43202

PATIENT
  Sex: Male

DRUGS (7)
  1. LOCHOLEST [Suspect]
     Dosage: 30 MG, UNK
     Route: 048
     Dates: start: 20080904, end: 20080911
  2. VALSARTAN [Suspect]
     Indication: HYPERTENSION
     Dosage: 80 MG, QD
     Route: 048
     Dates: start: 20080605, end: 20100204
  3. LIVALO KOWA [Suspect]
     Dosage: 1 MG, UNK
     Route: 048
     Dates: start: 20080807, end: 20080903
  4. IRBESARTAN [Concomitant]
     Indication: HYPERTENSION
     Dosage: 100 MG, UNK
     Route: 048
     Dates: start: 20100205
  5. BEZATOL - SLOW RELEASE [Concomitant]
     Dosage: 200 MG, UNK
     Route: 048
     Dates: start: 20080313
  6. AMLODIPINE [Concomitant]
     Indication: HYPERTENSION
     Dosage: 5 MG, UNK
     Route: 048
     Dates: start: 20080807, end: 20100204
  7. BEZATOL - SLOW RELEASE [Concomitant]
     Dosage: 400 MG, UNK
     Route: 048
     Dates: end: 20100204

REACTIONS (3)
  - PANCREATITIS ACUTE [None]
  - BLOOD PRESSURE DIASTOLIC INCREASED [None]
  - MYALGIA [None]
